FAERS Safety Report 16123569 (Version 7)
Quarter: 2020Q2

REPORT INFORMATION
  Report Type: Report from Study
  Country: ES (occurrence: ES)
  Receive Date: 20190327
  Receipt Date: 20200401
  Transmission Date: 20200713
  Serious: Yes (Death, Life-Threatening, Hospitalization)
  Sender: FDA-Public Use
  Company Number: PHHO2019ES002419

PATIENT
  Age: 61 Year
  Sex: Female
  Weight: 63 kg

DRUGS (21)
  1. DUROGESIC [Concomitant]
     Active Substance: FENTANYL
     Indication: MUSCULOSKELETAL CHEST PAIN
     Dosage: UNK
     Route: 065
     Dates: start: 20190118
  2. AMBISONE [Concomitant]
     Active Substance: AMPHOTERICIN B
     Indication: PROPHYLAXIS
     Dosage: UNK
     Route: 065
     Dates: start: 20190328, end: 20190329
  3. STILNOX [Concomitant]
     Active Substance: ZOLPIDEM TARTRATE
     Indication: INSOMNIA
     Dosage: UNK
     Route: 065
     Dates: start: 20180101
  4. METAMIZOLE SODIUM [Concomitant]
     Active Substance: METAMIZOLE SODIUM
     Indication: MUSCULOSKELETAL CHEST PAIN
  5. HIDROFEROL [Concomitant]
     Active Substance: CALCIFEDIOL
     Indication: OSTEOPOROSIS
     Dosage: UNK
     Route: 065
     Dates: start: 20190218
  6. LORAZEPAM. [Concomitant]
     Active Substance: LORAZEPAM
     Indication: INSOMNIA
  7. EUTIROX [Concomitant]
     Active Substance: LEVOTHYROXINE SODIUM
     Indication: HYPOTHYROIDISM
     Dosage: UNK
     Route: 065
     Dates: start: 20050101
  8. LORAZEPAM. [Concomitant]
     Active Substance: LORAZEPAM
     Indication: DEPRESSION
     Dosage: UNK
     Route: 065
     Dates: start: 20180101
  9. DOCETAXEL. [Suspect]
     Active Substance: DOCETAXEL
     Indication: NON-SMALL CELL LUNG CANCER
     Dosage: 128 MG, Q3W
     Route: 042
     Dates: start: 20190219
  10. ETORICOXIB. [Concomitant]
     Active Substance: ETORICOXIB
     Indication: MUSCULOSKELETAL CHEST PAIN
     Dosage: UNK
     Route: 065
     Dates: start: 20181212
  11. LYRICA [Concomitant]
     Active Substance: PREGABALIN
     Indication: MUSCULOSKELETAL CHEST PAIN
     Dosage: UNK
     Route: 065
     Dates: start: 20190215
  12. NO TREATMENT RECEIVED [Suspect]
     Active Substance: UNSPECIFIED INGREDIENT
     Indication: NON-SMALL CELL LUNG CANCER
     Dosage: NO TREATMENT
     Route: 065
  13. ADIRO [Concomitant]
     Active Substance: ASPIRIN
     Indication: MESENTERIC ARTERY STENOSIS
     Dosage: UNK
     Route: 065
     Dates: start: 20160816
  14. PREGABALINE [Concomitant]
     Active Substance: PREGABALIN
     Indication: BACK PAIN
     Dosage: UNK
     Route: 065
     Dates: start: 20190226, end: 20190330
  15. STILNOX [Concomitant]
     Active Substance: ZOLPIDEM TARTRATE
     Indication: DEPRESSION
  16. METAMIZOLE SODIUM [Concomitant]
     Active Substance: METAMIZOLE SODIUM
     Indication: MUSCULOSKELETAL CHEST PAIN
     Dosage: UNK
     Route: 065
     Dates: start: 20190215
  17. AVARIC [Concomitant]
     Indication: MUSCULOSKELETAL CHEST PAIN
     Dosage: UNK
     Route: 065
     Dates: start: 20190118
  18. ZOLPIDEM [Concomitant]
     Active Substance: ZOLPIDEM TARTRATE
     Indication: INSOMNIA
     Dosage: UNK
     Route: 065
     Dates: start: 20190228, end: 20190328
  19. ACZ885 [Suspect]
     Active Substance: CANAKINUMAB
     Indication: NON-SMALL CELL LUNG CANCER
     Dosage: 200 MG, Q3W
     Route: 058
     Dates: start: 20200219
  20. NATECAL [Concomitant]
     Active Substance: CALCIUM CARBONATE\CHOLECALCIFEROL
     Indication: OSTEOPOROSIS
     Dosage: UNK
     Route: 065
     Dates: start: 20190215
  21. ACFOL [Concomitant]
     Active Substance: FOLIC ACID
     Indication: PROPHYLAXIS
     Dosage: UNK
     Route: 065
     Dates: start: 20190314, end: 20190328

REACTIONS (4)
  - Flavobacterium infection [Fatal]
  - Influenza [Recovered/Resolved]
  - Pneumonia pneumococcal [Fatal]
  - Neutropenia [Recovered/Resolved]

NARRATIVE: CASE EVENT DATE: 20190225
